FAERS Safety Report 14144217 (Version 1)
Quarter: 2017Q4

REPORT INFORMATION
  Report Type: Spontaneous
  Country: US (occurrence: None)
  Receive Date: 20171030
  Receipt Date: 20171030
  Transmission Date: 20180321
  Serious: Yes (Other)
  Sender: FDA-Public Use
  Company Number: None

PATIENT
  Sex: Female

DRUGS (1)
  1. TALTZ [Suspect]
     Active Substance: IXEKIZUMAB
     Indication: PSORIASIS
     Route: 058
     Dates: start: 201706

REACTIONS (6)
  - Feeling abnormal [None]
  - Neuralgia [None]
  - Eye pain [None]
  - Arthralgia [None]
  - Pain in extremity [None]
  - Paraesthesia [None]
